FAERS Safety Report 11248520 (Version 1)
Quarter: 2015Q3

REPORT INFORMATION
  Report Type: Spontaneous
  Country: US (occurrence: US)
  Receive Date: 20150708
  Receipt Date: 20150708
  Transmission Date: 20151125
  Serious: Yes (Other)
  Sender: FDA-Public Use
  Company Number: US-ELI_LILLY_AND_COMPANY-US200912000657

PATIENT
  Sex: Male

DRUGS (3)
  1. GLUCOPHAGE [Concomitant]
     Active Substance: METFORMIN HYDROCHLORIDE
     Dosage: UNK, UNKNOWN
     Route: 065
  2. LASIX [Concomitant]
     Active Substance: FUROSEMIDE
     Dosage: UNK, UNKNOWN
     Route: 065
  3. PROZAC [Suspect]
     Active Substance: FLUOXETINE HYDROCHLORIDE
     Indication: DEPRESSION
     Dosage: UNK, UNKNOWN
     Route: 065

REACTIONS (8)
  - Anxiety [Recovered/Resolved]
  - Diabetes mellitus [Unknown]
  - Hypoaesthesia [Recovered/Resolved]
  - Skin burning sensation [Recovering/Resolving]
  - Amnesia [Recovering/Resolving]
  - Hypoaesthesia [Not Recovered/Not Resolved]
  - Fibromyalgia [Unknown]
  - Paranoia [Recovered/Resolved]
